FAERS Safety Report 4360593-X (Version None)
Quarter: 2004Q2

REPORT INFORMATION
  Report Type: 
  Country: None (occurrence: None)
  Receive Date: 20040519
  Receipt Date: 20040212
  Transmission Date: 20050107
  Serious: Yes (Death, Hospitalization)
  Sender: FDA-Public Use
  Company Number: PHBS2004JP02068

PATIENT
  Age: 83 Year
  Sex: Male
  Weight: 49 kg

DRUGS (5)
  1. GLEEVEC [Suspect]
     Indication: CHRONIC MYELOID LEUKAEMIA
     Dosage: 400 MG/D
     Route: 048
     Dates: start: 20020801, end: 20020801
  2. GLEEVEC [Suspect]
     Dosage: 200 MG/D
     Route: 048
     Dates: start: 20040121, end: 20040129
  3. GASTER [Concomitant]
     Dosage: 20 MG/D
     Route: 048
  4. THYRADIN [Concomitant]
     Dosage: 50 MG/D
     Route: 048
  5. HYDREA [Concomitant]
     Dosage: 500 MG/D
     Route: 048
     Dates: start: 20020801, end: 20040120

REACTIONS (11)
  - ANOREXIA [None]
  - ARTERIAL OCCLUSIVE DISEASE [None]
  - COUGH [None]
  - INTERSTITIAL LUNG DISEASE [None]
  - LOSS OF CONSCIOUSNESS [None]
  - MALIGNANT NEOPLASM PROGRESSION [None]
  - MYELOID LEUKAEMIA [None]
  - OXYGEN SATURATION DECREASED [None]
  - PNEUMOCYSTIS CARINII INFECTION [None]
  - PYREXIA [None]
  - RASH [None]
